FAERS Safety Report 7930212-1 (Version None)
Quarter: 2011Q4

REPORT INFORMATION
  Report Type: 
  Country: None (occurrence: None)
  Receive Date: 20111121
  Receipt Date: 20111115
  Transmission Date: 20120403
  Serious: Yes (Life-Threatening)
  Sender: FDA-Public Use
  Company Number: FR-ASTRAZENECA-2011SE62820

PATIENT
  Sex: Male
  Weight: 75 kg

DRUGS (11)
  1. VANDETANIB [Suspect]
     Indication: THYROID CANCER
     Route: 048
     Dates: start: 20111003, end: 20111018
  2. MORPHINE SULFATE [Concomitant]
     Indication: PAIN
     Route: 048
     Dates: start: 20111007
  3. POTASSIUM [Concomitant]
     Indication: HYPOKALAEMIA
     Route: 048
     Dates: start: 20111011
  4. VANDETANIB [Suspect]
     Route: 048
     Dates: start: 20111020
  5. MORPHINE SULFATE [Concomitant]
     Indication: PAIN
     Route: 048
     Dates: start: 20111007
  6. LEVOTHYROXINE SODIUM [Concomitant]
     Indication: THYROIDECTOMY
     Route: 048
  7. SPIRONOLACTONE [Concomitant]
     Indication: HYPERTENSION
     Route: 048
     Dates: start: 20111009
  8. IRBESARTAN [Concomitant]
     Indication: HYPOKALAEMIA
     Route: 048
  9. IRBESARTAN [Concomitant]
     Indication: HYPERTENSION
     Route: 048
  10. UMULINE [Concomitant]
     Indication: DIABETES MELLITUS
     Route: 058
     Dates: start: 20111011
  11. SPIRONOLACTONE [Concomitant]
     Indication: HYPOKALAEMIA
     Route: 048
     Dates: start: 20111009

REACTIONS (1)
  - DYSPNOEA [None]
